FAERS Safety Report 23096694 (Version 5)
Quarter: 2023Q4

REPORT INFORMATION
  Report Type: Spontaneous
  Country: US (occurrence: US)
  Receive Date: 20231023
  Receipt Date: 20231201
  Transmission Date: 20240109
  Serious: Yes (Hospitalization)
  Sender: FDA-Public Use
  Company Number: US-PFIZER INC-PV202300171641

PATIENT
  Age: 80 Year
  Sex: Male
  Weight: 89.81 kg

DRUGS (2)
  1. IBRANCE [Suspect]
     Active Substance: PALBOCICLIB
     Indication: Breast cancer metastatic
     Dosage: 1 TABLET A DAY FOR 21 DAYS, SO 3 WEEKS ON AND 1 WEEK OFF
     Route: 048
     Dates: start: 20230928
  2. IBRANCE [Suspect]
     Active Substance: PALBOCICLIB
     Dosage: 100 MG

REACTIONS (4)
  - Pneumonia [Unknown]
  - Rash macular [Unknown]
  - Pruritus [Unknown]
  - Wrong technique in product usage process [Unknown]

NARRATIVE: CASE EVENT DATE: 20231017
